FAERS Safety Report 24771990 (Version 1)
Quarter: 2024Q4

REPORT INFORMATION
  Report Type: Spontaneous
  Country: US (occurrence: US)
  Receive Date: 20241224
  Receipt Date: 20241224
  Transmission Date: 20250115
  Serious: No
  Sender: SANOFI AVENTIS
  Company Number: US-SANOFI-02342184

PATIENT
  Age: 80 Year
  Sex: Female

DRUGS (2)
  1. TOUJEO [Suspect]
     Active Substance: INSULIN GLARGINE
     Indication: Diabetes mellitus
     Dosage: , 35 UNITS IN THE MORNING AND 30 UNITS IN THE EVENING
     Route: 065
  2. TOUJEO [Suspect]
     Active Substance: INSULIN GLARGINE
     Dosage: 17 IU, BID
     Route: 058

REACTIONS (4)
  - Illness [Unknown]
  - Blood glucose increased [Unknown]
  - Intentional product misuse [Unknown]
  - Off label use [Unknown]
